FAERS Safety Report 6766470-9 (Version None)
Quarter: 2010Q2

REPORT INFORMATION
  Report Type: 
  Country: None (occurrence: None)
  Receive Date: 20100611
  Receipt Date: 20100603
  Transmission Date: 20101027
  Serious: Yes (Death)
  Sender: FDA-Public Use
  Company Number: GXKR2010US06218

PATIENT
  Age: 60 Year
  Sex: Female

DRUGS (2)
  1. CARBOPLATIN [Suspect]
     Indication: ENDOMETRIAL CANCER RECURRENT
     Route: 065
  2. PACLITAXEL [Suspect]
     Indication: ENDOMETRIAL CANCER RECURRENT
     Route: 065

REACTIONS (10)
  - ASTHENIA [None]
  - ATELECTASIS [None]
  - DIALYSIS [None]
  - DYSPNOEA [None]
  - ELECTROLYTE IMBALANCE [None]
  - FATIGUE [None]
  - HYPOTENSION [None]
  - METABOLIC DISORDER [None]
  - TACHYCARDIA [None]
  - TUMOUR LYSIS SYNDROME [None]
